FAERS Safety Report 7436805-2 (Version None)
Quarter: 2011Q2

REPORT INFORMATION
  Report Type: 
  Country: None (occurrence: None)
  Receive Date: 20110426
  Receipt Date: 20110422
  Transmission Date: 20111010
  Serious: Yes (Other)
  Sender: FDA-Public Use
  Company Number: US-PFIZER INC-2011088051

PATIENT
  Sex: Female

DRUGS (3)
  1. EFFEXOR XR [Concomitant]
     Indication: DEPRESSION
     Dosage: UNK
  2. TRILEPTAL [Concomitant]
     Dosage: UNK
  3. GEODON [Suspect]
     Indication: MAJOR DEPRESSION
     Dosage: 60 MG, DAILY
     Route: 048
     Dates: end: 20110401

REACTIONS (1)
  - SWELLING FACE [None]
